FAERS Safety Report 15643763 (Version 3)
Quarter: 2019Q3

REPORT INFORMATION
  Report Type: Report from Study
  Country: JP (occurrence: JP)
  Receive Date: 20181121
  Receipt Date: 20190918
  Transmission Date: 20191004
  Serious: Yes (Other)
  Sender: FDA-Public Use
  Company Number: JP-JNJFOC-20180844321

PATIENT
  Age: 45 Year
  Sex: Female
  Weight: 53.2 kg

DRUGS (31)
  1. SIMPONI [Suspect]
     Active Substance: GOLIMUMAB
     Dosage: GOLIMUMAB (GENETICAL RECOMBINATION): 50MG
     Route: 058
     Dates: start: 20180912, end: 20180912
  2. SIMPONI [Suspect]
     Active Substance: GOLIMUMAB
     Dosage: GOLIMUMAB (GENETICAL RECOMBINATION): 50MG
     Route: 058
     Dates: start: 20181107, end: 20181107
  3. SIMPONI [Suspect]
     Active Substance: GOLIMUMAB
     Dosage: GOLIMUMAB (GENETICAL RECOMBINATION): 50MG
     Route: 058
     Dates: start: 20190403, end: 20190403
  4. ALLOPURINOL. [Concomitant]
     Active Substance: ALLOPURINOL
     Route: 048
  5. MEIACT [Concomitant]
     Active Substance: CEFDITOREN PIVOXIL
     Indication: ANAL ABSCESS
     Dosage: CEFDITOREN PIVOXIL
     Dates: start: 2018
  6. SIMPONI [Suspect]
     Active Substance: GOLIMUMAB
     Dosage: GOLIMUMAB (GENETICAL RECOMBINATION): 50MG
     Route: 058
     Dates: start: 20181010, end: 20181010
  7. SIMPONI [Suspect]
     Active Substance: GOLIMUMAB
     Dosage: GOLIMUMAB (GENETICAL RECOMBINATION): 50MG
     Route: 058
     Dates: start: 20190111, end: 20190111
  8. SIMPONI [Suspect]
     Active Substance: GOLIMUMAB
     Dosage: GOLIMUMAB (GENETICAL RECOMBINATION): 50MG
     Route: 058
     Dates: start: 20190206, end: 20190206
  9. PREDONINE [Concomitant]
     Active Substance: PREDNISOLONE
     Indication: COLITIS ULCERATIVE
     Route: 048
     Dates: start: 20180609, end: 20180615
  10. PREDONINE [Concomitant]
     Active Substance: PREDNISOLONE
     Route: 048
     Dates: start: 20180707, end: 20180713
  11. SULFAMETHOXAZOLE AND TRIMETHOPRIM [Concomitant]
     Active Substance: SULFAMETHOXAZOLE\TRIMETHOPRIM
     Indication: PROPHYLAXIS
     Route: 048
  12. SIMPONI [Suspect]
     Active Substance: GOLIMUMAB
     Dosage: GOLIMUMAB (GENETICAL RECOMBINATION): 50MG
     Route: 058
     Dates: start: 20190703
  13. AZANIN [Concomitant]
     Active Substance: AZATHIOPRINE
     Indication: COLITIS ULCERATIVE
     Dosage: AZATHIOPRINE
     Route: 048
  14. PREDONINE [Concomitant]
     Active Substance: PREDNISOLONE
     Route: 048
     Dates: start: 20180616, end: 20180622
  15. DIAPHEN [Concomitant]
     Active Substance: SULFAMETHOXAZOLE\TRIMETHOPRIM
     Indication: PROPHYLAXIS
     Route: 048
  16. PENTASA [Concomitant]
     Active Substance: MESALAMINE
     Indication: COLITIS ULCERATIVE
     Route: 048
     Dates: start: 20180516, end: 20180606
  17. PREDONINE [Concomitant]
     Active Substance: PREDNISOLONE
     Route: 048
     Dates: start: 20180630, end: 20180706
  18. K-SUPPLY [Concomitant]
     Active Substance: POTASSIUM CHLORIDE
     Indication: HYPOKALAEMIA
     Route: 048
  19. SIMPONI [Suspect]
     Active Substance: GOLIMUMAB
     Dosage: GOLIMUMAB (GENETICAL RECOMBINATION): 50MG
     Route: 058
     Dates: start: 20190605, end: 20190605
  20. LOXONIN [Concomitant]
     Active Substance: LOXOPROFEN SODIUM
     Indication: ARTHRITIS
     Dosage: LOXOPROFEN SODIUM HYDRATE
     Route: 048
  21. SIMPONI [Suspect]
     Active Substance: GOLIMUMAB
     Indication: COLITIS ULCERATIVE
     Dosage: GOLIMUMAB (GENETICAL RECOMBINATION): 50MG
     Route: 058
     Dates: start: 20180706, end: 20180706
  22. SIMPONI [Suspect]
     Active Substance: GOLIMUMAB
     Dosage: GOLIMUMAB (GENETICAL RECOMBINATION): 50MG
     Route: 058
     Dates: start: 20180718, end: 20180718
  23. SIMPONI [Suspect]
     Active Substance: GOLIMUMAB
     Dosage: GOLIMUMAB (GENETICAL RECOMBINATION): 50MG
     Route: 058
     Dates: start: 20190508, end: 20190508
  24. PREDONINE [Concomitant]
     Active Substance: PREDNISOLONE
     Route: 048
     Dates: start: 20180623, end: 20180629
  25. TAKECAB [Concomitant]
     Active Substance: VONOPRAZAN FUMURATE
     Indication: GASTROOESOPHAGEAL REFLUX DISEASE
     Route: 048
  26. SIMPONI [Suspect]
     Active Substance: GOLIMUMAB
     Dosage: GOLIMUMAB (GENETICAL RECOMBINATION): 50MG
     Route: 058
     Dates: start: 20180815, end: 20180815
  27. SIMPONI [Suspect]
     Active Substance: GOLIMUMAB
     Dosage: GOLIMUMAB (GENETICAL RECOMBINATION): 50MG
     Route: 058
     Dates: start: 20181206, end: 20181206
  28. SIMPONI [Suspect]
     Active Substance: GOLIMUMAB
     Dosage: GOLIMUMAB (GENETICAL RECOMBINATION): 50MG
     Route: 058
     Dates: start: 20190306, end: 20190306
  29. MIYA-BM [Concomitant]
     Active Substance: CLOSTRIDIUM BUTYRICUM SPORES STRAIN M-55
     Indication: COLITIS ULCERATIVE
     Dosage: CLOSTRIDIUM BUTYRICUM
     Route: 048
     Dates: start: 20180531
  30. PENTASA [Concomitant]
     Active Substance: MESALAMINE
     Route: 048
     Dates: start: 20180607, end: 20180607
  31. TAKECAB [Concomitant]
     Active Substance: VONOPRAZAN FUMURATE
     Indication: GASTROOESOPHAGEAL REFLUX DISEASE
     Dosage: VONOPRAZAN FUMARATE
     Route: 048

REACTIONS (1)
  - Anal abscess [Recovering/Resolving]

NARRATIVE: CASE EVENT DATE: 20180727
